FAERS Safety Report 8009496-X (Version None)
Quarter: 2011Q4

REPORT INFORMATION
  Report Type: 
  Country: None (occurrence: None)
  Receive Date: 20111227
  Receipt Date: 20111214
  Transmission Date: 20120403
  Serious: Yes (Hospitalization)
  Sender: FDA-Public Use
  Company Number: JP-ELI_LILLY_AND_COMPANY-JP201112003576

PATIENT
  Sex: Female

DRUGS (1)
  1. FORTEO [Suspect]
     Route: 058

REACTIONS (2)
  - FALL [None]
  - BACK PAIN [None]
